FAERS Safety Report 25154521 (Version 1)
Quarter: 2025Q2

REPORT INFORMATION
  Report Type: Spontaneous
  Country: CA (occurrence: CA)
  Receive Date: 20250403
  Receipt Date: 20250403
  Transmission Date: 20250716
  Serious: Yes (Hospitalization)
  Sender: BAYER HEALTHCARE LLC
  Company Number: CA-BAYER-2025A041376

PATIENT
  Age: 92 Year
  Sex: Female

DRUGS (2)
  1. ALEVE [Suspect]
     Active Substance: NAPROXEN SODIUM
     Indication: Neck pain
  2. RIVAROXABAN [Suspect]
     Active Substance: RIVAROXABAN

REACTIONS (6)
  - Gastrointestinal injury [Recovered/Resolved]
  - Chest pain [Recovered/Resolved]
  - Weight decreased [Recovered/Resolved]
  - Dyspnoea [Recovered/Resolved]
  - Haemoglobin abnormal [Recovered/Resolved]
  - Troponin abnormal [Recovered/Resolved]
